FAERS Safety Report 18683281 (Version 3)
Quarter: 2021Q4

REPORT INFORMATION
  Report Type: Spontaneous
  Country: JP (occurrence: JP)
  Receive Date: 20201230
  Receipt Date: 20211108
  Transmission Date: 20220304
  Serious: Yes (Hospitalization)
  Sender: FDA-Public Use
  Company Number: JP-ELI_LILLY_AND_COMPANY-JP202012013081

PATIENT
  Age: 4 Year
  Sex: Male
  Weight: 8.9 kg

DRUGS (17)
  1. ADCIRCA [Suspect]
     Active Substance: TADALAFIL
     Indication: Pulmonary arterial hypertension
     Dosage: 12 MG, DAILY
     Route: 065
     Dates: end: 20200730
  2. UPTRAVI [Suspect]
     Active Substance: SELEXIPAG
     Indication: Pulmonary arterial hypertension
     Dosage: 0.06 MG, DAILY
     Route: 048
     Dates: start: 20180523, end: 20180531
  3. UPTRAVI [Suspect]
     Active Substance: SELEXIPAG
     Dosage: 0.12 MG, DAILY
     Route: 048
     Dates: start: 20180601, end: 20180608
  4. UPTRAVI [Suspect]
     Active Substance: SELEXIPAG
     Dosage: 0.24 MG, DAILY
     Route: 048
     Dates: start: 20180609, end: 20180615
  5. UPTRAVI [Suspect]
     Active Substance: SELEXIPAG
     Dosage: 0.3 MG, DAILY
     Route: 048
     Dates: start: 20180616, end: 20180621
  6. UPTRAVI [Suspect]
     Active Substance: SELEXIPAG
     Dosage: 0.4 MG, DAILY
     Route: 048
     Dates: start: 20180622, end: 20180629
  7. UPTRAVI [Suspect]
     Active Substance: SELEXIPAG
     Dosage: 0.5 MG, DAILY
     Route: 048
     Dates: start: 20180630, end: 20180723
  8. UPTRAVI [Suspect]
     Active Substance: SELEXIPAG
     Dosage: 0.6 MG, DAILY
     Route: 048
     Dates: start: 20180724, end: 20180802
  9. UPTRAVI [Suspect]
     Active Substance: SELEXIPAG
     Dosage: 0.64 MG, DAILY
     Route: 048
     Dates: start: 20180803, end: 20180809
  10. UPTRAVI [Suspect]
     Active Substance: SELEXIPAG
     Dosage: 0.68 MG, DAILY
     Route: 048
     Dates: start: 20180810
  11. WARFARIN POTASSIUM [Concomitant]
     Active Substance: WARFARIN POTASSIUM
     Indication: Product used for unknown indication
     Dosage: 0.8 MG, UNKNOWN
     Route: 065
  12. AZOSEMIDE [Concomitant]
     Active Substance: AZOSEMIDE
     Indication: Product used for unknown indication
     Dosage: 12 MG, UNKNOWN
     Route: 065
  13. ENALAPRIL MALEATE [Concomitant]
     Active Substance: ENALAPRIL MALEATE
     Indication: Product used for unknown indication
     Dosage: 1.25 MG, UNKNOWN
     Route: 065
  14. SAMSCA [Concomitant]
     Active Substance: TOLVAPTAN
     Indication: Product used for unknown indication
     Dosage: 3.75 MG, UNKNOWN
     Route: 065
  15. FUROSEMIDE [Concomitant]
     Active Substance: FUROSEMIDE
     Indication: Product used for unknown indication
     Dosage: 25 MG, UNKNOWN
     Route: 065
  16. SPIRONOLACTONE [Concomitant]
     Active Substance: SPIRONOLACTONE
     Indication: Product used for unknown indication
     Dosage: 25 MG, UNKNOWN
     Route: 065
  17. LEVETIRACETAM [Concomitant]
     Active Substance: LEVETIRACETAM
     Indication: Epilepsy
     Dosage: 180 MG, UNKNOWN
     Route: 065

REACTIONS (1)
  - Protein-losing gastroenteropathy [Recovering/Resolving]

NARRATIVE: CASE EVENT DATE: 20200521
